FAERS Safety Report 7790878-6 (Version None)
Quarter: 2011Q3

REPORT INFORMATION
  Report Type: 
  Country: None (occurrence: None)
  Receive Date: 20110930
  Receipt Date: 20110921
  Transmission Date: 20111222
  Serious: Yes (Other)
  Sender: FDA-Public Use
  Company Number: US-ASTRAZENECA-2011SE44446

PATIENT
  Age: 57 Year
  Sex: Male

DRUGS (5)
  1. BUSPAR [Concomitant]
  2. PULMICORT FLEXHALER [Suspect]
     Route: 055
  3. SYMBICORT [Suspect]
     Route: 055
  4. ASPIRIN [Concomitant]
  5. NEXIUM [Suspect]
     Route: 048

REACTIONS (2)
  - ASTHMA [None]
  - DEAFNESS UNILATERAL [None]
